FAERS Safety Report 13167768 (Version 1)
Quarter: 2017Q1

REPORT INFORMATION
  Report Type: Spontaneous
  Country: US (occurrence: US)
  Receive Date: 20170131
  Receipt Date: 20170131
  Transmission Date: 20170428
  Serious: Yes (Other)
  Sender: FDA-Public Use
  Company Number: US-SAGENTPRD-2016-US-000042

PATIENT
  Age: 21 Year
  Sex: Female

DRUGS (6)
  1. DOXORUBICIN HYDROCHLORIDE INJECTION, USP [Suspect]
     Active Substance: DOXORUBICIN HYDROCHLORIDE
  2. BLEOMYCIN [Concomitant]
     Active Substance: BLEOMYCIN SULFATE
  3. CISPLATIN. [Concomitant]
     Active Substance: CISPLATIN
  4. CYCLOPHOSPHAMIDE. [Concomitant]
     Active Substance: CYCLOPHOSPHAMIDE
  5. ETOPOSIDE. [Concomitant]
     Active Substance: ETOPOSIDE
  6. VINBLASTINE [Concomitant]
     Active Substance: VINBLASTINE

REACTIONS (2)
  - Thrombocytopenia [Unknown]
  - Neutropenia [Unknown]
